FAERS Safety Report 14543393 (Version 2)
Quarter: 2018Q1

REPORT INFORMATION
  Report Type: Spontaneous
  Country: JP (occurrence: JP)
  Receive Date: 20180216
  Receipt Date: 20180302
  Transmission Date: 20180509
  Serious: Yes (Death, Hospitalization)
  Sender: FDA-Public Use
  Company Number: JP-ALLERGAN-1808317US

PATIENT
  Age: 69 Year
  Sex: Female

DRUGS (6)
  1. BEPOTASTINE BESILATE [Suspect]
     Active Substance: BEPOTASTINE BESILATE
     Indication: RASH
     Dosage: UNK, UNKNOWN
     Route: 065
  2. FENOFIBRATE. [Concomitant]
     Active Substance: FENOFIBRATE
     Indication: DYSLIPIDAEMIA
     Dosage: UNK
  3. PREDNISOLONE. [Concomitant]
     Active Substance: PREDNISOLONE
     Indication: RASH
     Dosage: 1 MG, QD
  4. URSODEOXYCHOLIC ACID - BP [Suspect]
     Active Substance: URSODIOL
     Indication: HEPATITIS
     Dosage: UNK
     Route: 048
  5. AMLODIPINE BESILATE [Concomitant]
     Active Substance: AMLODIPINE BESYLATE
     Indication: HYPERTENSION
     Dosage: UNK
  6. ASPIRIN. [Concomitant]
     Active Substance: ASPIRIN
     Indication: THROMBOSIS PROPHYLAXIS
     Dosage: UNK

REACTIONS (6)
  - Bronchopulmonary aspergillosis [Fatal]
  - Agranulocytosis [Recovered/Resolved]
  - Off label use [Unknown]
  - Cerebral haemorrhage [Fatal]
  - Pneumonia [Fatal]
  - Disseminated intravascular coagulation [Fatal]
